FAERS Safety Report 9444634 (Version 2)
Quarter: 2013Q4

REPORT INFORMATION
  Report Type: Spontaneous
  Country: US (occurrence: US)
  Receive Date: 20130807
  Receipt Date: 20131007
  Transmission Date: 20140711
  Serious: Yes (Hospitalization)
  Sender: FDA-Public Use
  Company Number: US-BAYER-2013-095417

PATIENT
  Age: 21 Year
  Sex: Female

DRUGS (5)
  1. YAZ [Suspect]
  2. IBUPROFEN [Concomitant]
     Dosage: AS NEEDED
  3. DILAUDID [Concomitant]
  4. ULTRAM [Concomitant]
  5. ESTROSTEP [Concomitant]

REACTIONS (1)
  - Deep vein thrombosis [None]
